FAERS Safety Report 5024080-8 (Version None)
Quarter: 2006Q2

REPORT INFORMATION
  Report Type: 
  Country: None (occurrence: None)
  Receive Date: 20060607
  Receipt Date: 20060525
  Transmission Date: 20061013
  Serious: Yes (Other)
  Sender: FDA-Public Use
  Company Number: 2006069023

PATIENT
  Sex: Female

DRUGS (2)
  1. DEPO-PROVERA [Suspect]
     Indication: CONTRACEPTION
     Dosage: UNKNOWN (1ST INJECTION), UNKNOWN, UNKNOWN (LAST INJECTION) UNK
     Dates: start: 19880101, end: 19880101
  2. DEPO-PROVERA [Suspect]
     Indication: CONTRACEPTION
     Dosage: UNKNOWN (1ST INJECTION), UNKNOWN, UNKNOWN (LAST INJECTION) UNK
     Dates: start: 20020101, end: 20020101

REACTIONS (1)
  - INFERTILITY FEMALE [None]
